FAERS Safety Report 5252837-7 (Version None)
Quarter: 2007Q1

REPORT INFORMATION
  Report Type: 
  Country: None (occurrence: None)
  Receive Date: 20070227
  Receipt Date: 20070219
  Transmission Date: 20070707
  Serious: Yes (Other)
  Sender: FDA-Public Use
  Company Number: GXKR2007GB01762

PATIENT
  Age: 68 Year
  Weight: 78 kg

DRUGS (9)
  1. AMIODARONE HCL [Suspect]
     Dosage: 200 MG, QD
  2. ASPIRIN [Suspect]
     Dosage: 75 MG, QD, UNKNOWN
  3. BISOPROLOL FUMARATE [Suspect]
     Dosage: 7.5 MG, QD, UNKNOWN
  4. FUROSEMIDE [Suspect]
     Dosage: 80 MG, BID, UNKNOWN
  5. ACIPIMOX (ACIPIMOX) [Suspect]
     Dosage: 250 MG, BID, UNKNOWN
  6. DIGOXIN [Suspect]
     Dosage: 0.125 MG, QD, UNKNOWN
  7. EZETIMIBE (EZETIMIBE) [Suspect]
     Dosage: 10 MG, QD, UNKNOWN
  8. LANSOPRAZOLE [Suspect]
     Dosage: 30 MG, QD, UNKNOWN
  9. PERINDOPRIL ERBUMINE [Suspect]
     Dosage: 2 MG, QD, UNKNOWN

REACTIONS (5)
  - DIZZINESS [None]
  - DYSPNOEA [None]
  - FATIGUE [None]
  - OEDEMA [None]
  - PARAESTHESIA [None]
